FAERS Safety Report 25258134 (Version 1)
Quarter: 2025Q2

REPORT INFORMATION
  Report Type: Spontaneous
  Country: CN (occurrence: CN)
  Receive Date: 20250501
  Receipt Date: 20250501
  Transmission Date: 20250716
  Serious: Yes (Other)
  Sender: AMGEN
  Company Number: CN-AMGEN-CHNSP2025083688

PATIENT
  Age: 3 Year
  Sex: Male

DRUGS (2)
  1. BLINATUMOMAB [Suspect]
     Active Substance: BLINATUMOMAB
     Indication: B-cell type acute leukaemia
     Dosage: 5 MICROGRAM/SQ. METER, QD [(NOT TO EXCEED 9 UG/DAY) ON DAYS 1 THROUGH 3]
     Route: 040
  2. BLINATUMOMAB [Suspect]
     Active Substance: BLINATUMOMAB
     Dosage: 15 MICROGRAM/SQ. METER, QD [(NOT TO EXCEED 28 UG/DAY) ON DAYS 4 THROUGH 28]
     Route: 040

REACTIONS (1)
  - Minimal residual disease [Recovered/Resolved]
